FAERS Safety Report 6787821-5 (Version None)
Quarter: 2010Q2

REPORT INFORMATION
  Report Type: 
  Country: None (occurrence: None)
  Receive Date: 20100623
  Receipt Date: 20071112
  Transmission Date: 20101027
  Serious: No
  Sender: FDA-Public Use
  Company Number: US-PFIZER INC-2007056766

PATIENT
  Sex: Male
  Weight: 63.5 kg

DRUGS (6)
  1. SUTENT [Suspect]
     Indication: METASTATIC NEOPLASM
     Dosage: 50MG
     Dates: start: 20070628
  2. METOPROLOL TARTRATE [Concomitant]
  3. LISINOPRIL [Concomitant]
  4. LOVASTATIN [Concomitant]
  5. EZETIMIBE [Concomitant]
  6. ACETYLSALICYLIC ACID [Concomitant]

REACTIONS (5)
  - BLOOD TEST ABNORMAL [None]
  - DISEASE PROGRESSION [None]
  - DRY SKIN [None]
  - NEPHROPATHY [None]
  - OROPHARYNGEAL PAIN [None]
